FAERS Safety Report 21374214 (Version 1)
Quarter: 2022Q3

REPORT INFORMATION
  Report Type: Report from Study
  Country: US (occurrence: US)
  Receive Date: 20220926
  Receipt Date: 20220926
  Transmission Date: 20221027
  Serious: Yes (Other)
  Sender: FDA-Public Use
  Company Number: US-Ipsen Biopharmaceuticals, Inc.-2022-26399

PATIENT
  Age: 28 Year
  Sex: Female

DRUGS (3)
  1. SOMATULINE DEPOT [Suspect]
     Active Substance: LANREOTIDE ACETATE
     Indication: Pancreatic carcinoma
     Route: 058
     Dates: start: 202008
  2. SOMATULINE DEPOT [Suspect]
     Active Substance: LANREOTIDE ACETATE
     Indication: Off label use
  3. CREON [Concomitant]
     Active Substance: PANCRELIPASE AMYLASE\PANCRELIPASE LIPASE\PANCRELIPASE PROTEASE
     Dosage: 3-4 CAPSULES WITH MEAL AND 2-3 CAPSULES WITH A SNACK

REACTIONS (17)
  - Hypothyroidism [Unknown]
  - Glucose tolerance impaired [Unknown]
  - Injection site pain [Unknown]
  - Injection site mass [Unknown]
  - Injection site haemorrhage [Unknown]
  - Fatigue [Unknown]
  - Headache [Unknown]
  - Nausea [Unknown]
  - Abdominal discomfort [Unknown]
  - Pain [Unknown]
  - Hypophagia [Unknown]
  - Weight decreased [Unknown]
  - Cholelithiasis [Unknown]
  - Alopecia [Unknown]
  - Hypotension [Unknown]
  - Polycystic ovaries [Unknown]
  - Off label use [Unknown]

NARRATIVE: CASE EVENT DATE: 20200801
